FAERS Safety Report 9406708 (Version 1)
Quarter: 2013Q3

REPORT INFORMATION
  Report Type: Spontaneous
  Country: US (occurrence: US)
  Receive Date: 20130718
  Receipt Date: 20130718
  Transmission Date: 20140515
  Serious: No
  Sender: FDA-Public Use
  Company Number: US-BIOGENIDEC-2013BI064332

PATIENT
  Age: 46 Year
  Sex: Female

DRUGS (4)
  1. AVONEX [Suspect]
     Indication: MULTIPLE SCLEROSIS
     Route: 030
     Dates: start: 20080618
  2. NEURONTIN [Concomitant]
  3. ULTRAM [Concomitant]
  4. VICODIN [Concomitant]

REACTIONS (4)
  - Restlessness [Not Recovered/Not Resolved]
  - Incorrect route of drug administration [Recovered/Resolved]
  - Pain in extremity [Not Recovered/Not Resolved]
  - Pain [Not Recovered/Not Resolved]
